FAERS Safety Report 5727412-8 (Version None)
Quarter: 2008Q2

REPORT INFORMATION
  Report Type: 
  Country: None (occurrence: None)
  Receive Date: 20080505
  Receipt Date: 20080421
  Transmission Date: 20081010
  Serious: Yes (Life-Threatening, Hospitalization)
  Sender: FDA-Public Use
  Company Number: ES-BAYER-200817124GPV

PATIENT
  Age: 81 Year
  Sex: Female

DRUGS (4)
  1. ADIRO 300 MG/ ASA [Suspect]
     Indication: DIABETES MELLITUS
     Route: 048
     Dates: end: 20080219
  2. DIANBEN/ METFORMINE [Concomitant]
     Indication: DIABETES MELLITUS
     Route: 048
  3. GLIPIZIDE [Concomitant]
     Indication: DIABETES MELLITUS
     Route: 048
  4. ENALAPRIL [Concomitant]
     Indication: HYPERTENSION
     Route: 048

REACTIONS (1)
  - GASTRIC ULCER HAEMORRHAGE [None]
